FAERS Safety Report 10599582 (Version 2)
Quarter: 2015Q1

REPORT INFORMATION
  Report Type: Spontaneous
  Country: IT (occurrence: IT)
  Receive Date: 20141121
  Receipt Date: 20150212
  Transmission Date: 20150720
  Serious: Yes (Hospitalization)
  Sender: FDA-Public Use
  Company Number: IT-UCBSA-2014018940

PATIENT
  Age: 36 Year
  Sex: Female

DRUGS (3)
  1. ZARONTIN [Concomitant]
     Active Substance: ETHOSUXIMIDE
     Indication: GENERALISED NON-CONVULSIVE EPILEPSY
     Dosage: 250 MG/ML SYRUP, 10 ML
     Route: 048
     Dates: start: 2009
  2. KEPPRA [Suspect]
     Active Substance: LEVETIRACETAM
     Indication: GENERALISED NON-CONVULSIVE EPILEPSY
     Dosage: 2000MG DAILY DOSE
     Route: 048
     Dates: start: 20141029, end: 20141106
  3. TEGRETOL [Concomitant]
     Active Substance: CARBAMAZEPINE
     Indication: GENERALISED NON-CONVULSIVE EPILEPSY
     Dosage: 400 MG, UNK
     Route: 048
     Dates: start: 2009

REACTIONS (2)
  - Bradyphrenia [Recovered/Resolved]
  - Hypokinesia [Recovered/Resolved]

NARRATIVE: CASE EVENT DATE: 20141103
